FAERS Safety Report 4286580-8 (Version None)
Quarter: 2004Q1

REPORT INFORMATION
  Report Type: 
  Country: None (occurrence: None)
  Receive Date: 20040205
  Receipt Date: 20040123
  Transmission Date: 20041129
  Serious: Yes (Death)
  Sender: FDA-Public Use
  Company Number: 2004S1000216

PATIENT
  Age: 31 Year
  Sex: Male

DRUGS (1)
  1. CLOZAPINE [Suspect]
     Dosage: 400 MG Q 6PM, ORAL
     Route: 048
     Dates: start: 20021022, end: 20031201

REACTIONS (1)
  - DEATH [None]
